FAERS Safety Report 8954513 (Version 1)
Quarter: 2012Q4

REPORT INFORMATION
  Report Type: 
  Country: AR (occurrence: AR)
  Receive Date: 20121210
  Receipt Date: 20121210
  Transmission Date: 20130627
  Serious: Yes (Other)
  Sender: FDA-Public Use
  Company Number: PHHY2012AR112877

PATIENT
  Sex: Male

DRUGS (1)
  1. DIOVAN [Suspect]
     Indication: HYPERTENSION
     Dosage: 1 DF daily
     Route: 048

REACTIONS (4)
  - Meniscus injury [Unknown]
  - Ligament injury [Unknown]
  - Thinking abnormal [Unknown]
  - Depressed mood [Unknown]
